FAERS Safety Report 5116845-9 (Version None)
Quarter: 2006Q3

REPORT INFORMATION
  Report Type: 
  Country: None (occurrence: None)
  Receive Date: 20060925
  Receipt Date: 20060919
  Transmission Date: 20061208
  Serious: Yes (Hospitalization)
  Sender: FDA-Public Use
  Company Number: MEDI-0004078

PATIENT
  Age: 13 Month
  Sex: Female
  Weight: 7.8 kg

DRUGS (6)
  1. SYNAGIS [Suspect]
     Indication: ANTIVIRAL PROPHYLAXIS
     Dosage: SEE IMAGE, INTRAMUSCULAR
     Route: 030
     Dates: start: 20051026, end: 20051221
  2. SYNAGIS [Suspect]
     Indication: ANTIVIRAL PROPHYLAXIS
     Dosage: SEE IMAGE, INTRAMUSCULAR
     Route: 030
     Dates: start: 20060118, end: 20060118
  3. SYNAGIS [Suspect]
     Indication: ANTIVIRAL PROPHYLAXIS
     Dosage: SEE IMAGE, INTRAMUSCULAR
     Route: 030
     Dates: start: 20051026
  4. SYNAGIS [Suspect]
     Indication: ANTIVIRAL PROPHYLAXIS
     Dosage: SEE IMAGE, INTRAMUSCULAR
     Route: 030
     Dates: start: 20051123
  5. SPIRONOLACTONE [Concomitant]
  6. CHLORTHIAZIDE (CHLOROTHIAZIDE) [Concomitant]

REACTIONS (2)
  - BRONCHIOLITIS [None]
  - LUNG INFECTION [None]
